FAERS Safety Report 4512708-8 (Version None)
Quarter: 2004Q4

REPORT INFORMATION
  Report Type: 
  Country: None (occurrence: None)
  Receive Date: 20041012
  Receipt Date: 20040805
  Transmission Date: 20050328
  Serious: No
  Sender: FDA-Public Use
  Company Number: A03200402625

PATIENT
  Age: 68 Year
  Sex: Male

DRUGS (3)
  1. UROXATRAL [Suspect]
     Indication: BENIGN PROSTATIC HYPERPLASIA
     Dosage: 10 MG OD - ORAL
     Route: 048
     Dates: start: 20040709
  2. LOVASTATIN [Concomitant]
  3. EYE DROPS [Concomitant]

REACTIONS (2)
  - FATIGUE [None]
  - FLATULENCE [None]
